FAERS Safety Report 5451105-8 (Version None)
Quarter: 2007Q3

REPORT INFORMATION
  Report Type: 
  Country: None (occurrence: None)
  Receive Date: 20070913
  Receipt Date: 20070904
  Transmission Date: 20080115
  Serious: Yes (Hospitalization)
  Sender: FDA-Public Use
  Company Number: FR-BRISTOL-MYERS SQUIBB COMPANY-13903844

PATIENT
  Age: 56 Year
  Sex: Female

DRUGS (12)
  1. ENDOXAN [Suspect]
     Indication: ACUTE LYMPHOCYTIC LEUKAEMIA
     Dosage: THERAPY WITH ENDOXAN 550 MG IV DAILY DOSAGE ON 08-JUN-2007.
     Route: 042
     Dates: start: 20070622, end: 20070622
  2. KIDROLASE [Suspect]
     Indication: ACUTE LYMPHOCYTIC LEUKAEMIA
     Dosage: THERAPY WITH KIDROLASE 10000 IU IV (FREQUENCY -AS NEEDED) ON 27-JUN-2007
     Route: 042
     Dates: start: 20070705, end: 20070705
  3. VINCRISTINE [Suspect]
     Indication: ACUTE LYMPHOCYTIC LEUKAEMIA
     Dosage: THERAPY WITH VINCRISTINE 2 MG IV (FREQUENCY -AS NEEDED) ON 08-JUN-2007
     Route: 042
     Dates: start: 20070629, end: 20070629
  4. CERUBIDINE [Suspect]
     Indication: ACUTE LYMPHOCYTIC LEUKAEMIA
     Dosage: THERAPY WITH CERUBIDIN 20 MG IV (FREQUENCY -AS NEEDED) ON 08-JUN-2007
     Route: 042
     Dates: start: 20070623, end: 20070623
  5. ORBENIN CAP [Suspect]
     Indication: CELLULITIS
     Dates: start: 20070711, end: 20070719
  6. XANAX [Suspect]
     Dates: start: 20070101, end: 20070719
  7. INIPOMP [Suspect]
     Dates: start: 20070101, end: 20070719
  8. DUPHALAC [Suspect]
     Dates: start: 20070101, end: 20070719
  9. PREDNISONE [Concomitant]
     Dates: start: 20070608, end: 20070628
  10. METHOTREXATE [Concomitant]
     Dosage: INTRATHECAL INJECTION ON 02, 05, 07, 09, 12, 15, 19, 22 AND 25-JUN-07
     Dates: start: 20070602, end: 20070625
  11. CYTARABINE [Concomitant]
     Dates: start: 20070602, end: 20070625
  12. DEPO-MEDROL [Concomitant]
     Route: 037
     Dates: start: 20070602, end: 20070625

REACTIONS (1)
  - CYTOLYTIC HEPATITIS [None]
